FAERS Safety Report 9887498 (Version 1)
Quarter: 2013Q4

REPORT INFORMATION
  Report Type: Spontaneous
  Country: US (occurrence: None)
  Receive Date: 20131223
  Receipt Date: 20131223
  Transmission Date: 20140711
  Serious: Yes (Other)
  Sender: FDA-Public Use
  Company Number: 220733LEO

PATIENT
  Sex: Female

DRUGS (2)
  1. PICATO (0.015 %, GEL) [Suspect]
     Indication: ACTINIC KERATOSIS
     Dosage: TREATMENT COMPLETED
     Route: 061
  2. HORMONE REPLACEMENT (HORMONES NOS) [Concomitant]

REACTIONS (5)
  - Application site exfoliation [None]
  - Drug ineffective [None]
  - Drug administration error [None]
  - Inappropriate schedule of drug administration [None]
  - Drug administered at inappropriate site [None]
